FAERS Safety Report 5921008-0 (Version None)
Quarter: 2008Q4

REPORT INFORMATION
  Report Type: 
  Country: None (occurrence: None)
  Receive Date: 20081016
  Receipt Date: 20081007
  Transmission Date: 20090506
  Serious: Yes (Other)
  Sender: FDA-Public Use
  Company Number: AT-ASTRAZENECA-2008PK01854

PATIENT
  Sex: Female
  Weight: 62 kg

DRUGS (3)
  1. CRESTOR [Suspect]
     Route: 048
     Dates: start: 20080610, end: 20080722
  2. INSULIN [Concomitant]
     Indication: DIABETES MELLITUS
     Dosage: APPROX. 35-40 IE
     Dates: start: 19860101
  3. DAFLON [Concomitant]

REACTIONS (2)
  - ALOPECIA [None]
  - PRURITUS [None]
